FAERS Safety Report 8807945 (Version 2)
Quarter: 2013Q2

REPORT INFORMATION
  Report Type: Spontaneous
  Country: GB (occurrence: GB)
  Receive Date: 20120925
  Receipt Date: 20130621
  Transmission Date: 20140414
  Serious: Yes (Other)
  Sender: FDA-Public Use
  Company Number: GB-JNJFOC-20120907742

PATIENT
  Sex: Male

DRUGS (4)
  1. GOLIMUMAB [Suspect]
     Indication: PSORIASIS
     Route: 058
     Dates: start: 20111003
  2. GOLIMUMAB [Suspect]
     Indication: PSORIATIC ARTHROPATHY
     Route: 058
     Dates: start: 20111003
  3. STEROIDS NOS [Suspect]
     Indication: EYE NAEVUS
     Route: 065
  4. STEROIDS NOS [Suspect]
     Indication: MELANOCYTIC NAEVUS
     Route: 065

REACTIONS (7)
  - Cataract [Recovering/Resolving]
  - Skin lesion [Recovering/Resolving]
  - Pruritus generalised [Recovering/Resolving]
  - Melanocytic naevus [Recovering/Resolving]
  - Eye naevus [Recovering/Resolving]
  - Mass [Recovering/Resolving]
  - Psoriasis [Recovering/Resolving]
